FAERS Safety Report 23185695 (Version 3)
Quarter: 2023Q4

REPORT INFORMATION
  Report Type: Report from Study
  Country: JP (occurrence: JP)
  Receive Date: 20231115
  Receipt Date: 20231226
  Transmission Date: 20240109
  Serious: Yes (Other)
  Sender: FDA-Public Use
  Company Number: JP-ALXN-A202010120

PATIENT
  Age: 67 Year
  Sex: Male
  Weight: 64 kg

DRUGS (29)
  1. SOLIRIS [Suspect]
     Active Substance: ECULIZUMAB
     Indication: Myasthenia gravis
     Dosage: 900 MILLIGRAM, QW
     Route: 042
     Dates: start: 20200613, end: 20200704
  2. SOLIRIS [Suspect]
     Active Substance: ECULIZUMAB
     Dosage: 1200 MILLIGRAM, Q2W
     Route: 042
     Dates: end: 20200919
  3. SOLIRIS [Suspect]
     Active Substance: ECULIZUMAB
     Dosage: 1200 MILLIGRAM
     Route: 065
     Dates: start: 20220826, end: 20220909
  4. SOLIRIS [Suspect]
     Active Substance: ECULIZUMAB
     Dosage: 1200 MILLIGRAM
     Route: 065
     Dates: start: 20220927
  5. PREDONINE [Concomitant]
     Active Substance: PREDNISOLONE
     Indication: Myasthenia gravis
     Dosage: 55 MILLIGRAM, QOD
     Route: 048
     Dates: start: 20110120
  6. PREDONINE [Concomitant]
     Active Substance: PREDNISOLONE
     Dosage: 20MG AND 5MG EVERY OTHER DAY
     Route: 048
     Dates: start: 20200229, end: 20200724
  7. PREDONINE [Concomitant]
     Active Substance: PREDNISOLONE
     Dosage: 5 MILLIGRAM, QOD
     Route: 048
     Dates: start: 20200229, end: 20200704
  8. PREDONINE [Concomitant]
     Active Substance: PREDNISOLONE
     Dosage: 20 MILLIGRAM, QOD
     Route: 048
     Dates: start: 20200725
  9. PREDONINE [Concomitant]
     Active Substance: PREDNISOLONE
     Dosage: 8 MILLIGRAM, QOD
     Route: 048
     Dates: start: 20220727, end: 20230331
  10. PREDONINE [Concomitant]
     Active Substance: PREDNISOLONE
     Dosage: 7 MILLIGRAM, QOD
     Route: 048
     Dates: start: 20230401
  11. PROGRAF [Concomitant]
     Active Substance: TACROLIMUS
     Indication: Myasthenia gravis
     Dosage: 3 MILLIGRAM, QD
     Route: 048
     Dates: start: 20140315
  12. MESTINON [Concomitant]
     Active Substance: PYRIDOSTIGMINE BROMIDE
     Indication: Myasthenia gravis
     Dosage: 60 MILLIGRAM, TID
     Route: 048
  13. MESTINON [Concomitant]
     Active Substance: PYRIDOSTIGMINE BROMIDE
     Dosage: 120 MILLIGRAM
     Route: 048
  14. RABEPRAZOLE SODIUM [Concomitant]
     Active Substance: RABEPRAZOLE SODIUM
     Indication: Prophylaxis
     Dosage: 10 MILLIGRAM, QD
     Route: 048
  15. CANDESARTAN CILEXETIL [Concomitant]
     Active Substance: CANDESARTAN CILEXETIL
     Indication: Hypertension
     Dosage: 8 MILLIGRAM, QD
     Route: 048
  16. AMLODIPINE BESYLATE [Concomitant]
     Active Substance: AMLODIPINE BESYLATE
     Indication: Hypertension
     Dosage: 2.5 MILLIGRAM, QD
     Route: 065
  17. MIYA-BM [Concomitant]
     Active Substance: CLOSTRIDIUM BUTYRICUM SPORES STRAIN M-55
     Indication: Constipation
     Dosage: 3 DOSAGE FORM, TID
     Route: 048
  18. ACTONEL [Concomitant]
     Active Substance: RISEDRONATE SODIUM
     Indication: Prophylaxis
     Dosage: 17.5 MILLIGRAM, QW
     Route: 048
  19. BROTIZOLAM [Concomitant]
     Active Substance: BROTIZOLAM
     Indication: Insomnia
     Dosage: 0.25 MILLIGRAM, QD
     Route: 048
  20. CARBOCYSTEINE [Concomitant]
     Active Substance: CARBOCYSTEINE
     Indication: Chronic sinusitis
     Dosage: 250 MILLIGRAM, BID
     Route: 048
  21. SULFAMETHOXAZOLE\TRIMETHOPRIM [Concomitant]
     Active Substance: SULFAMETHOXAZOLE\TRIMETHOPRIM
     Indication: Prophylaxis
     Dosage: 1 DOSAGE FORM, QD
     Route: 048
  22. ETHYL LOFLAZEPATE [Concomitant]
     Active Substance: ETHYL LOFLAZEPATE
     Indication: Anxiety disorder
     Dosage: 1 MILLIGRAM, QD
     Route: 048
  23. PURSENNID                          /00142207/ [Concomitant]
     Indication: Constipation
     Dosage: 24 MILLIGRAM, PRN
     Route: 048
  24. RISEDRONATE SODIUM [Concomitant]
     Active Substance: RISEDRONATE SODIUM
     Indication: Prophylaxis
     Dosage: 17.5 MILLIGRAM, QW
     Route: 048
  25. ACETAMINOPHEN ISEI [Concomitant]
     Indication: Spinal osteoarthritis
     Dosage: 200 MILLIGRAM, TID
     Route: 048
  26. HERBALS [Concomitant]
     Active Substance: HERBALS
     Indication: Spinal osteoarthritis
     Dosage: 2.5 MILLIGRAM, BID
     Route: 065
  27. Cefzon [Concomitant]
     Indication: Sinusitis
     Dosage: 100 MILLIGRAM, TID
     Route: 065
  28. CLARICELL [Concomitant]
     Indication: Sinusitis
     Dosage: 200 MILLIGRAM, QD
     Route: 065
  29. MAGNESIUM OXIDE [Concomitant]
     Active Substance: MAGNESIUM OXIDE
     Indication: Constipation
     Dosage: 250 MILLIGRAM, BID
     Route: 065

REACTIONS (5)
  - Myasthenia gravis [Recovered/Resolved]
  - Back pain [Recovering/Resolving]
  - Headache [Recovered/Resolved]
  - Muscle spasms [Not Recovered/Not Resolved]
  - Oedema due to renal disease [Recovering/Resolving]

NARRATIVE: CASE EVENT DATE: 20200705
